FAERS Safety Report 18779237 (Version 2)
Quarter: 2021Q1

REPORT INFORMATION
  Report Type: Report from Study
  Country: US (occurrence: US)
  Receive Date: 20210125
  Receipt Date: 20210325
  Transmission Date: 20210419
  Serious: Yes (Other)
  Sender: FDA-Public Use
  Company Number: US-BIOGEN-2021BI00969651

PATIENT
  Sex: Female

DRUGS (1)
  1. TYSABRI [Suspect]
     Active Substance: NATALIZUMAB
     Indication: MULTIPLE SCLEROSIS
     Dosage: INFUSED OVER ONE HOUR
     Route: 065
     Dates: start: 20200221

REACTIONS (3)
  - Noninfectious myelitis [Not Recovered/Not Resolved]
  - Multiple sclerosis [Unknown]
  - Noninfective encephalitis [Not Recovered/Not Resolved]

NARRATIVE: CASE EVENT DATE: 2020
